FAERS Safety Report 6492077-7 (Version None)
Quarter: 2009Q4

REPORT INFORMATION
  Report Type: 
  Country: None (occurrence: None)
  Receive Date: 20091125
  Receipt Date: 20090615
  Transmission Date: 20100525
  Serious: Yes (Other)
  Sender: FDA-Public Use
  Company Number: 2009BH009982

PATIENT
  Age: 34 Month
  Sex: Male
  Weight: 10.2 kg

DRUGS (2)
  1. DIANEAL [Suspect]
     Indication: PERITONEAL DIALYSIS
     Dosage: 4.3 L;IP
     Route: 033
     Dates: start: 20070301
  2. HEPARIN [Concomitant]

REACTIONS (3)
  - ABDOMINAL PAIN [None]
  - PERITONEAL CLOUDY EFFLUENT [None]
  - PERITONEAL DIALYSIS COMPLICATION [None]
